FAERS Safety Report 24237762 (Version 1)
Quarter: 2024Q3

REPORT INFORMATION
  Report Type: Spontaneous
  Country: US (occurrence: None)
  Receive Date: 20240821
  Receipt Date: 20240821
  Transmission Date: 20241016
  Serious: Yes (unspecified)
  Sender: Public
  Company Number: None

PATIENT
  Age: 68 Year
  Sex: Male
  Weight: 94.5 kg

DRUGS (4)
  1. DEFINITY [Suspect]
     Active Substance: PERFLUTREN
     Indication: Echocardiogram
     Dosage: OTHER FREQUENCY : DURING ECHO;?
     Route: 042
  2. METOPROLOL [Concomitant]
  3. VITAMIN B [Concomitant]
     Active Substance: VITAMIN B
  4. VITAMIN D [Concomitant]
     Active Substance: VITAMIN D NOS

REACTIONS (8)
  - Pain [None]
  - Pain [None]
  - Palpitations [None]
  - Angina pectoris [None]
  - Blood pressure increased [None]
  - Dyspnoea [None]
  - Cardiac procedure complication [None]
  - Contrast media reaction [None]

NARRATIVE: CASE EVENT DATE: 20240819
